FAERS Safety Report 8045955-1 (Version None)
Quarter: 2012Q1

REPORT INFORMATION
  Report Type: 
  Country: None (occurrence: None)
  Receive Date: 20120113
  Receipt Date: 20111108
  Transmission Date: 20120608
  Serious: Yes (Other)
  Sender: FDA-Public Use
  Company Number: DE-GLAXOSMITHKLINE-D0073339A

PATIENT
  Age: 26 Year
  Sex: Female

DRUGS (2)
  1. LEVETIRACETAM [Concomitant]
     Dosage: 3000MG PER DAY
     Route: 065
  2. TROBALT [Suspect]
     Indication: PARTIAL SEIZURES
     Dosage: 600MG PER DAY
     Route: 048

REACTIONS (6)
  - RESTLESSNESS [None]
  - GAIT DISTURBANCE [None]
  - OVERDOSE [None]
  - PARTIAL SEIZURES [None]
  - HYPOMANIA [None]
  - TREMOR [None]
